FAERS Safety Report 10170396 (Version 1)
Quarter: 2014Q2

REPORT INFORMATION
  Report Type: Spontaneous
  Country: US (occurrence: US)
  Receive Date: 20140513
  Receipt Date: 20140513
  Transmission Date: 20141212
  Serious: No
  Sender: FDA-Public Use
  Company Number: US-UPSHER-SMITH LABORATORIES, INC.-13004103

PATIENT
  Age: 54 Year
  Sex: Female

DRUGS (5)
  1. KLOR-CON TABLETS [Suspect]
     Indication: BLOOD POTASSIUM DECREASED
     Dosage: 20 MEQ, BID
     Route: 048
     Dates: start: 201212, end: 20131211
  2. KLOR-CON TABLETS [Suspect]
     Dosage: 30 MEQ Q AM AND 20 MEQ Q PM
     Route: 048
     Dates: start: 20131212
  3. LACTULOSE [Concomitant]
     Dosage: UNK
  4. XIFAXAN [Concomitant]
     Dosage: UNK
  5. MULTIPLE UNSPECIFIED MEDICATIONS [Concomitant]
     Dosage: UNK

REACTIONS (2)
  - Blood potassium decreased [Not Recovered/Not Resolved]
  - Medication residue present [Not Recovered/Not Resolved]
